FAERS Safety Report 9410885 (Version 1)
Quarter: 2013Q3

REPORT INFORMATION
  Report Type: Spontaneous
  Country: BR (occurrence: BR)
  Receive Date: 20130719
  Receipt Date: 20130719
  Transmission Date: 20140515
  Serious: Yes (Other)
  Sender: FDA-Public Use
  Company Number: CHNY2013BR001538

PATIENT
  Sex: Male

DRUGS (2)
  1. BUFFERIN [Suspect]
     Dosage: 81 MG, UNK
  2. SOMALGIN [Suspect]
     Dosage: 81 MG, UNK

REACTIONS (1)
  - Urinary retention [Unknown]
